FAERS Safety Report 9322458 (Version 3)
Quarter: 2013Q4

REPORT INFORMATION
  Report Type: Spontaneous
  Country: US (occurrence: US)
  Receive Date: 20130531
  Receipt Date: 20131021
  Transmission Date: 20140711
  Serious: Yes (Hospitalization, Other)
  Sender: FDA-Public Use
  Company Number: US-009507513-2012SP021508

PATIENT
  Sex: Female
  Weight: 99.77 kg

DRUGS (1)
  1. NUVARING [Suspect]
     Indication: CONTRACEPTION
     Dosage: UNK
     Route: 067
     Dates: start: 200804, end: 20090330

REACTIONS (10)
  - Acute myocardial infarction [Unknown]
  - Pulmonary embolism [Unknown]
  - Smear cervix abnormal [Unknown]
  - Dysmenorrhoea [Unknown]
  - Coronary artery disease [Unknown]
  - Catheterisation cardiac [Unknown]
  - Deep vein thrombosis [Unknown]
  - Hepatic enzyme increased [Recovered/Resolved]
  - Mental disorder [Unknown]
  - Coronary arterial stent insertion [Unknown]
